FAERS Safety Report 12774567 (Version 1)
Quarter: 2016Q3

REPORT INFORMATION
  Report Type: Report from Study
  Country: CN (occurrence: CN)
  Receive Date: 20160923
  Receipt Date: 20160923
  Transmission Date: 20161109
  Serious: Yes (Hospitalization, Other)
  Sender: FDA-Public Use
  Company Number: PHHY2016CN128756

PATIENT
  Age: 44 Year
  Sex: Female
  Weight: 50 kg

DRUGS (2)
  1. LETROZOLE. [Suspect]
     Active Substance: LETROZOLE
     Indication: BREAST CANCER
     Dosage: 2.5 MG, QD (FOR 1-28 DAYS)
     Route: 048
     Dates: start: 20160714
  2. PALBOCICLIB [Suspect]
     Active Substance: PALBOCICLIB
     Indication: BREAST CANCER
     Dosage: 125 MG, QD (FOR DAY 1-21)
     Route: 048
     Dates: start: 20160714, end: 20160727

REACTIONS (8)
  - Pulmonary tuberculosis [Unknown]
  - Haemoptysis [Recovered/Resolved]
  - Bone marrow failure [Unknown]
  - Infective exacerbation of bronchiectasis [Recovered/Resolved]
  - Bone tuberculosis [Unknown]
  - Productive cough [Recovering/Resolving]
  - Emphysema [Unknown]
  - Cough [Recovering/Resolving]

NARRATIVE: CASE EVENT DATE: 20160727
